FAERS Safety Report 8525032-3 (Version None)
Quarter: 2012Q3

REPORT INFORMATION
  Report Type: 
  Country: None (occurrence: None)
  Receive Date: 20120720
  Receipt Date: 20120718
  Transmission Date: 20120928
  Serious: Yes (Hospitalization)
  Sender: FDA-Public Use
  Company Number: CN-ROCHE-1089679

PATIENT
  Sex: Male
  Weight: 68.5 kg

DRUGS (5)
  1. CELLCEPT [Suspect]
     Route: 048
     Dates: start: 20110901, end: 20110901
  2. PREDNISONE [Concomitant]
     Indication: RENAL TRANSPLANT
     Route: 048
     Dates: start: 20070124, end: 20110901
  3. PREDNISONE [Concomitant]
     Route: 048
     Dates: start: 20110901
  4. CELLCEPT [Suspect]
     Indication: RENAL TRANSPLANT
     Route: 048
     Dates: start: 20070124, end: 20110901
  5. NEORAL [Concomitant]
     Indication: RENAL TRANSPLANT
     Dosage: 3 DOSE FORMS IN THE MORNING, 2 DOSE FORMS IN THE EVENING
     Route: 048
     Dates: start: 20070124

REACTIONS (4)
  - BLOOD ALBUMIN DECREASED [None]
  - CHRONIC ALLOGRAFT NEPHROPATHY [None]
  - DIABETES MELLITUS [None]
  - PROTEINURIA [None]
